FAERS Safety Report 7373005-9 (Version None)
Quarter: 2011Q1

REPORT INFORMATION
  Report Type: 
  Country: None (occurrence: None)
  Receive Date: 20110324
  Receipt Date: 20110310
  Transmission Date: 20110831
  Serious: Yes (Hospitalization)
  Sender: FDA-Public Use
  Company Number: PHHY2010US62141

PATIENT
  Sex: Male
  Weight: 102 kg

DRUGS (14)
  1. RANEXA [Concomitant]
  2. PLAVIX [Concomitant]
  3. METOPROLOL [Concomitant]
  4. TEKTURNA (ALISKIREN FUMARATE) [Concomitant]
  5. LOVAZA [Concomitant]
  6. NORVASC [Concomitant]
  7. GLEEVEC [Suspect]
     Indication: NEOPLASM MALIGNANT
     Dosage: 600 MG DAILY
     Route: 048
     Dates: start: 20091020
  8. TRICOR [Concomitant]
  9. ZETIA [Concomitant]
  10. PRAVACHOL [Concomitant]
  11. LANTUS [Concomitant]
  12. ZESTRIL [Concomitant]
  13. GLEEVEC [Suspect]
     Dosage: 400 MG DAILY
     Route: 048
  14. NOVOLOG [Concomitant]

REACTIONS (2)
  - PROTEIN URINE PRESENT [None]
  - CARDIAC DISORDER [None]
